FAERS Safety Report 13097782 (Version 1)
Quarter: 2017Q1

REPORT INFORMATION
  Report Type: Spontaneous
  Country: US (occurrence: US)
  Receive Date: 20170109
  Receipt Date: 20170109
  Transmission Date: 20170428
  Serious: Yes (Hospitalization)
  Sender: FDA-Public Use
  Company Number: None

PATIENT
  Age: 88 Year
  Sex: Male
  Weight: 77.6 kg

DRUGS (20)
  1. ACETAMINOPHEN. [Concomitant]
     Active Substance: ACETAMINOPHEN
  2. ASA [Concomitant]
     Active Substance: ASPIRIN
  3. LEVOTHYROXINE. [Concomitant]
     Active Substance: LEVOTHYROXINE
  4. SITAGLIPTIN [Concomitant]
     Active Substance: SITAGLIPTIN
  5. MAGNESIUM OXIDE. [Concomitant]
     Active Substance: MAGNESIUM OXIDE
  6. TAMSULOSIN ER [Concomitant]
  7. BUDESONIDE. [Concomitant]
     Active Substance: BUDESONIDE
  8. HEPARIN [Concomitant]
     Active Substance: HEPARIN SODIUM
  9. PANTOPRAZOLE [Concomitant]
     Active Substance: PANTOPRAZOLE SODIUM
  10. TORSEMIDE. [Concomitant]
     Active Substance: TORSEMIDE
  11. NTG [Concomitant]
     Active Substance: NITROGLYCERIN
  12. CLOPIDOGREL [Concomitant]
     Active Substance: CLOPIDOGREL BISULFATE
  13. LANTUS [Concomitant]
     Active Substance: INSULIN GLARGINE
  14. LIDOCAINE. [Concomitant]
     Active Substance: LIDOCAINE
  15. GABAPENTIN. [Suspect]
     Active Substance: GABAPENTIN
     Indication: NEURALGIA
     Route: 048
     Dates: start: 20161102, end: 20161103
  16. ATORVASTATIN [Concomitant]
     Active Substance: ATORVASTATIN
  17. FINASTERIDE. [Concomitant]
     Active Substance: FINASTERIDE
  18. HCTZ [Concomitant]
     Active Substance: HYDROCHLOROTHIAZIDE
  19. HUMALOG [Concomitant]
     Active Substance: INSULIN LISPRO
  20. ONDANSETRON [Concomitant]
     Active Substance: ONDANSETRON

REACTIONS (5)
  - Acute kidney injury [None]
  - Somnolence [None]
  - Mental status changes [None]
  - Myoclonus [None]
  - Acute respiratory failure [None]

NARRATIVE: CASE EVENT DATE: 20161103
